FAERS Safety Report 20159703 (Version 1)
Quarter: 2021Q4

REPORT INFORMATION
  Report Type: Report from Study
  Country: US (occurrence: US)
  Receive Date: 20211208
  Receipt Date: 20211208
  Transmission Date: 20220303
  Serious: No
  Sender: FDA-Public Use
  Company Number: US-NOVARTISTESTPH-NVSC2021US280088

PATIENT
  Sex: Male

DRUGS (10)
  1. TASIGNA [Suspect]
     Active Substance: NILOTINIB
     Dosage: 150 MG
     Route: 048
  2. ALLOPURINOL [Concomitant]
     Active Substance: ALLOPURINOL
     Indication: Product used for unknown indication
     Dosage: 300 MG, BID (TAKE 2 CAPSULES 300 MG BY MOUTH EVERY 12 HOURS)
     Route: 048
  3. FENOFIBRATE [Concomitant]
     Active Substance: FENOFIBRATE
     Indication: Product used for unknown indication
     Dosage: 300 MG, BID (TAKE 2 CAPSULES 300 MG BY MOUTH EVERY 12 HOURS)
     Route: 048
  4. HYDROCODONE [Concomitant]
     Active Substance: HYDROCODONE
     Indication: Product used for unknown indication
     Dosage: 300 MG, BID  (TAKE 2 CAPSULES 300 MG BY MOUTH EVERY 12 HOURS)
     Route: 048
  5. METOPROLOL [Concomitant]
     Active Substance: METOPROLOL
     Indication: Product used for unknown indication
     Dosage: 300 MG, BID (TAKE 2 CAPSULES 300 MG BY MOUTH EVERY 12 HOURS)
     Route: 048
  6. PANTOPRAZOLE [Concomitant]
     Active Substance: PANTOPRAZOLE
     Indication: Product used for unknown indication
     Dosage: 300 MG, BID (TAKE 2 CAPSULES 300 MG BY MOUTH EVERY 12 HOURS)
     Route: 048
  7. PARICALCITOL [Concomitant]
     Active Substance: PARICALCITOL
     Indication: Product used for unknown indication
     Dosage: 300 MG, BID(TAKE 2 CAPSULES 300 MG BY MOUTH EVERY 12 HOURS)
     Route: 048
  8. PRASUGREL [Concomitant]
     Active Substance: PRASUGREL
     Indication: Product used for unknown indication
     Dosage: 300 MG, BID(TAKE 2 CAPSULES 300 MG BY MOUTH EVERY 12 HOURS)
     Route: 048
  9. SYNTHROID [Concomitant]
     Active Substance: LEVOTHYROXINE SODIUM
     Indication: Product used for unknown indication
     Dosage: 300 MG, BID(TAKE 2 CAPSULES 300 MG BY MOUTH EVERY 12 HOURS)
     Route: 048
  10. FUROSEMIDE [Concomitant]
     Active Substance: FUROSEMIDE
     Indication: Product used for unknown indication
     Dosage: 300 MG, BID(TAKE 2 CAPSULES 300 MG BY MOUTH EVERY 12 HOURS)
     Route: 065

REACTIONS (1)
  - Product administration interrupted [Unknown]
